FAERS Safety Report 7126799-1 (Version None)
Quarter: 2010Q4

REPORT INFORMATION
  Report Type: 
  Country: None (occurrence: None)
  Receive Date: 20101129
  Receipt Date: 20091112
  Transmission Date: 20110411
  Serious: No
  Sender: FDA-Public Use
  Company Number: US-PFIZER INC-2009298258

PATIENT
  Sex: Male
  Weight: 88.5 kg

DRUGS (3)
  1. VIAGRA [Suspect]
     Indication: ERECTILE DYSFUNCTION
     Dosage: 100 MG, UNK
     Route: 048
     Dates: start: 20070101, end: 20091101
  2. CLARITIN [Concomitant]
     Indication: HYPERSENSITIVITY
     Dosage: UNK
  3. PRILOSEC [Concomitant]
     Indication: DYSPEPSIA
     Dosage: 20 MG, 2X/DAY
     Route: 048

REACTIONS (4)
  - CHILLS [None]
  - DIZZINESS [None]
  - DYSPNOEA [None]
  - HEART RATE DECREASED [None]
